FAERS Safety Report 9416330 (Version 2)
Quarter: 2014Q3

REPORT INFORMATION
  Report Type: Spontaneous
  Country: US (occurrence: None)
  Receive Date: 20130718
  Receipt Date: 20140702
  Transmission Date: 20150326
  Serious: Yes (Other)
  Sender: FDA-Public Use
  Company Number: JPI-P-033575

PATIENT
  Age: 59 Year
  Sex: Male
  Weight: 113.6 kg

DRUGS (2)
  1. XYREM [Suspect]
     Active Substance: SODIUM OXYBATE
     Indication: NARCOLEPSY
     Dosage: 9 GM (4.5GM, 2 IN 1 D) ORAL
     Route: 048
     Dates: start: 20050818
  2. PAIN MEDICATIONS (CODEINE PHOSPHATE, PARACETAMOL) [Concomitant]

REACTIONS (4)
  - Intervertebral disc degeneration [None]
  - Condition aggravated [None]
  - Spinal fusion surgery [None]
  - Back pain [None]

NARRATIVE: CASE EVENT DATE: 20070813
